FAERS Safety Report 10073604 (Version 1)
Quarter: 2014Q2

REPORT INFORMATION
  Report Type: Spontaneous
  Country: DK (occurrence: FR)
  Receive Date: 20140411
  Receipt Date: 20140411
  Transmission Date: 20141212
  Serious: Yes (Hospitalization)
  Sender: FDA-Public Use
  Company Number: FR-FRI-1000066335

PATIENT
  Age: 16 Year
  Sex: Female

DRUGS (8)
  1. ESCITALOPRAM [Suspect]
     Indication: DEPRESSION
     Route: 048
     Dates: start: 201401, end: 20140124
  2. ESCITALOPRAM [Suspect]
     Indication: SUICIDAL IDEATION
  3. ESCITALOPRAM [Suspect]
     Indication: DEPRESSION
     Dosage: 10 MG
     Route: 048
     Dates: start: 20140125, end: 20140225
  4. ESCITALOPRAM [Suspect]
     Indication: SUICIDAL IDEATION
  5. ALPRAZOLAM [Concomitant]
     Dosage: 0.25 MG
     Dates: start: 201401, end: 20140124
  6. ALPRAZOLAM [Concomitant]
     Dosage: 0.75 MG
     Dates: start: 20140125, end: 20140204
  7. ALPRAZOLAM [Concomitant]
     Dosage: 0.5 MG
     Dates: start: 20140205, end: 20140208
  8. ALPRAZOLAM [Concomitant]
     Dosage: 0.25 MG
     Dates: start: 20140209, end: 20140212

REACTIONS (2)
  - Conversion disorder [Recovered/Resolved]
  - Off label use [Recovered/Resolved]
